FAERS Safety Report 7954385-X (Version None)
Quarter: 2011Q4

REPORT INFORMATION
  Report Type: 
  Country: None (occurrence: None)
  Receive Date: 20111202
  Receipt Date: 20111122
  Transmission Date: 20120403
  Serious: Yes (Death, Hospitalization)
  Sender: FDA-Public Use
  Company Number: US-GLAXOSMITHKLINE-A0884537A

PATIENT
  Age: 49 Year
  Sex: Male

DRUGS (1)
  1. AVANDIA [Suspect]
     Indication: DIABETES MELLITUS
     Dosage: 8MG PER DAY
     Route: 048
     Dates: start: 20020218, end: 20090524

REACTIONS (5)
  - RENAL FAILURE [None]
  - HEPATIC HAEMORRHAGE [None]
  - PANCREATIC CARCINOMA [None]
  - METASTASES TO LIVER [None]
  - LIVER DISORDER [None]
